FAERS Safety Report 7110096-4 (Version None)
Quarter: 2010Q4

REPORT INFORMATION
  Report Type: 
  Country: None (occurrence: None)
  Receive Date: 20101118
  Receipt Date: 20101108
  Transmission Date: 20110411
  Serious: Yes (Other)
  Sender: FDA-Public Use
  Company Number: DE-JNJFOC-20101102433

PATIENT
  Age: 54 Year
  Sex: Female

DRUGS (9)
  1. HALDOL [Suspect]
     Indication: ILL-DEFINED DISORDER
     Route: 048
     Dates: start: 20100708, end: 20100825
  2. HALDOL [Suspect]
     Route: 048
     Dates: start: 20100708, end: 20100825
  3. HALDOL [Suspect]
     Route: 048
     Dates: start: 20100708, end: 20100825
  4. HALDOL [Suspect]
     Route: 048
     Dates: start: 20100708, end: 20100825
  5. HALDOL [Suspect]
     Route: 048
     Dates: start: 20100708, end: 20100825
  6. HALDOL [Suspect]
     Route: 048
     Dates: start: 20100708, end: 20100825
  7. TAXILAN [Suspect]
     Indication: ILL-DEFINED DISORDER
     Route: 048
     Dates: start: 20100708
  8. TAXILAN [Suspect]
     Route: 048
     Dates: start: 20100708
  9. CIPRALEX [Suspect]
     Indication: ILL-DEFINED DISORDER
     Route: 048
     Dates: start: 20100724

REACTIONS (5)
  - FALL [None]
  - HYPOTENSION [None]
  - PARKINSONISM [None]
  - SYNCOPE [None]
  - VERTIGO [None]
